FAERS Safety Report 7975197-7 (Version None)
Quarter: 2011Q4

REPORT INFORMATION
  Report Type: 
  Country: None (occurrence: None)
  Receive Date: 20111213
  Receipt Date: 20111103
  Transmission Date: 20120403
  Serious: No
  Sender: FDA-Public Use
  Company Number: US-AMGEN-USASP2011057638

PATIENT
  Age: 51 Year
  Sex: Female

DRUGS (2)
  1. ENBREL [Suspect]
     Indication: PSORIASIS
  2. ENBREL [Suspect]
     Indication: PSORIATIC ARTHROPATHY
     Dosage: 50 MG, 2 TIMES/WK
     Dates: start: 20090101

REACTIONS (6)
  - PAIN [None]
  - PSORIASIS [None]
  - SINUSITIS [None]
  - INJECTION SITE MASS [None]
  - STAPHYLOCOCCAL SKIN INFECTION [None]
  - INJECTION SITE PAIN [None]
